FAERS Safety Report 18091035 (Version 1)
Quarter: 2020Q3

REPORT INFORMATION
  Report Type: Spontaneous
  Country: FR (occurrence: FR)
  Receive Date: 20200730
  Receipt Date: 20200730
  Transmission Date: 20201103
  Serious: Yes (Hospitalization)
  Sender: FDA-Public Use
  Company Number: FR-TEVA-2020-FR-1806581

PATIENT
  Age: 80 Year
  Sex: Female
  Weight: 58.9 kg

DRUGS (7)
  1. TANGANIL 500 MG, COMPRIME [Suspect]
     Active Substance: ACETYLLEUCINE
     Indication: VERTIGO
     Route: 048
     Dates: end: 20200626
  2. MODOPAR [Suspect]
     Active Substance: BENSERAZIDE HYDROCHLORIDE\LEVODOPA
     Indication: PARKINSON^S DISEASE
     Route: 048
  3. SERESTA 10 MG, COMPRIME [Suspect]
     Active Substance: OXAZEPAM
     Indication: ANXIETY
     Dosage: + 1/2 TAB IF NEEDED
     Route: 048
  4. TAMOXIFENE (CITRATE DE) [Suspect]
     Active Substance: TAMOXIFEN CITRATE
     Indication: BREAST NEOPLASM
     Route: 048
     Dates: end: 20200625
  5. ESCITALOPRAM [Suspect]
     Active Substance: ESCITALOPRAM OXALATE
     Indication: ANXIETY
     Route: 048
     Dates: end: 20200626
  6. AZILECT [Suspect]
     Active Substance: RASAGILINE MESYLATE
     Indication: PARKINSON^S DISEASE
     Route: 048
     Dates: end: 20200626
  7. MANTADIX 100 MG, CAPSULE [Suspect]
     Active Substance: AMANTADINE HYDROCHLORIDE
     Indication: PARKINSON^S DISEASE
     Dosage: 2 ? 1 ? 0
     Route: 048
     Dates: end: 20200626

REACTIONS (1)
  - Confusional state [Recovered/Resolved]

NARRATIVE: CASE EVENT DATE: 20200625
